FAERS Safety Report 19577474 (Version 1)
Quarter: 2021Q3

REPORT INFORMATION
  Report Type: Spontaneous
  Country: IN (occurrence: IN)
  Receive Date: 20210719
  Receipt Date: 20210719
  Transmission Date: 20211014
  Serious: Yes (Other)
  Sender: FDA-Public Use
  Company Number: IN-MEDEXUS PHARMA, INC.-2021MED00157

PATIENT
  Age: 21 Year
  Sex: Male

DRUGS (2)
  1. VALPROIC ACID. [Suspect]
     Active Substance: VALPROIC ACID
     Indication: JUVENILE ABSENCE EPILEPSY
     Dosage: 600 MG, 1X/DAY
     Route: 065
  2. METHOTREXATE. [Suspect]
     Active Substance: METHOTREXATE
     Indication: PSORIASIS
     Dosage: 15 MG, 1X/WEEK
     Route: 065

REACTIONS (2)
  - Petit mal epilepsy [Recovered/Resolved]
  - Drug interaction [Recovered/Resolved]
